FAERS Safety Report 9843096 (Version 5)
Quarter: 2014Q1

REPORT INFORMATION
  Report Type: Report from Study
  Country: US (occurrence: US)
  Receive Date: 20140124
  Receipt Date: 20140327
  Transmission Date: 20141002
  Serious: Yes (Hospitalization, Other)
  Sender: FDA-Public Use
  Company Number: US-ABBVIE-14P-163-1191468-00

PATIENT
  Age: 48 Year
  Sex: Female
  Weight: 90.8 kg

DRUGS (11)
  1. HUMIRA [Suspect]
     Indication: COLITIS ULCERATIVE
     Route: 058
     Dates: start: 20131227, end: 20131227
  2. HUMIRA [Suspect]
     Indication: CROHN^S DISEASE
     Route: 058
  3. HUMIRA [Suspect]
  4. VITAMIN D [Concomitant]
     Indication: PRODUCT USED FOR UNKNOWN INDICATION
  5. DELZICOL [Concomitant]
     Indication: CROHN^S DISEASE
  6. BUDESONIDE [Concomitant]
     Indication: CROHN^S DISEASE
  7. OMEPRAZOLE [Concomitant]
     Indication: GASTROOESOPHAGEAL REFLUX DISEASE
  8. TRICOR [Concomitant]
     Indication: BLOOD CHOLESTEROL INCREASED
     Dosage: AT BEDTIME
  9. PRAMIPEXOLE [Concomitant]
     Indication: RESTLESS LEGS SYNDROME
     Dosage: AT BEDTIME
  10. FAMCICLOVIR [Concomitant]
     Indication: HERPES VIRUS INFECTION
  11. UNKNOWN MEDICATION [Concomitant]
     Indication: BLOOD CHOLESTEROL INCREASED
     Dosage: AT BEDTIME

REACTIONS (21)
  - Skin discolouration [Recovered/Resolved]
  - Peripheral coldness [Recovered/Resolved]
  - Mobility decreased [Recovered/Resolved]
  - Muscular weakness [Recovering/Resolving]
  - Hypoaesthesia [Recovering/Resolving]
  - Vascular occlusion [Recovering/Resolving]
  - Thrombosis [Recovering/Resolving]
  - Thrombosis [Recovering/Resolving]
  - Pain in extremity [Recovered/Resolved]
  - Ingrowing nail [Recovering/Resolving]
  - International normalised ratio decreased [Recovering/Resolving]
  - Pain in extremity [Recovering/Resolving]
  - Pain in extremity [Recovering/Resolving]
  - Staphylococcal infection [Recovering/Resolving]
  - Peripheral coldness [Recovering/Resolving]
  - Plantar fasciitis [Not Recovered/Not Resolved]
  - Poor peripheral circulation [Recovering/Resolving]
  - Pain in extremity [Not Recovered/Not Resolved]
  - Pain in extremity [Unknown]
  - Injection site extravasation [Unknown]
  - Incorrect dose administered [Unknown]
